FAERS Safety Report 5006059-5 (Version None)
Quarter: 2006Q1

REPORT INFORMATION
  Report Type: 
  Country: None (occurrence: None)
  Receive Date: 20060328
  Receipt Date: 20060223
  Transmission Date: 20060701
  Serious: No
  Sender: FDA-Public Use
  Company Number: 06P-163-0325935-00

PATIENT
  Age: 58 Year
  Sex: Female
  Weight: 79.3795 kg

DRUGS (10)
  1. HUMIRA [Suspect]
     Indication: RHEUMATOID ARTHRITIS
     Dosage: 40 MG, 1 IN 2 WK, SUBSUTANEOUS
     Route: 058
     Dates: start: 20040315, end: 20060101
  2. MELOXICAM [Concomitant]
  3. FUROSEMIDE [Concomitant]
  4. DIGOXIN [Concomitant]
  5. DOXEPIN [Concomitant]
  6. QUETIAPINE FUMARATE [Concomitant]
  7. ANCOVERT [Concomitant]
  8. DIAZEPAM [Concomitant]
  9. PREDNISONE [Concomitant]
  10. MEROLAX [Concomitant]

REACTIONS (1)
  - BREAST CANCER [None]
